FAERS Safety Report 11492320 (Version 1)
Quarter: 2015Q3

REPORT INFORMATION
  Report Type: Spontaneous
  Country: JP (occurrence: None)
  Receive Date: 20150909
  Receipt Date: 20150909
  Transmission Date: 20151125
  Serious: Yes (Hospitalization)
  Sender: FDA-Public Use
  Company Number: 2015-001777

PATIENT
  Age: 74 Year
  Sex: Female

DRUGS (5)
  1. ACTONEL [Suspect]
     Active Substance: RISEDRONATE SODIUM
     Indication: OSTEOPOROSIS
     Route: 048
  2. ETIZOLAM [Concomitant]
     Active Substance: ETIZOLAM
  3. CONIEL (BENIDIPINE HYDROCHLORIDE) (BENIDIPINE HYDROCHLORIDE) [Concomitant]
     Active Substance: BENIDIPINE HYDROCHLORIDE
  4. MECOBALAMIN [Concomitant]
     Active Substance: METHYLCOBALAMIN
  5. EPERISONE HYDROCHLORIDE [Concomitant]
     Active Substance: EPERISONE HYDROCHLORIDE

REACTIONS (4)
  - Ulcer [None]
  - General physical health deterioration [None]
  - Decreased appetite [None]
  - Gastrooesophageal reflux disease [None]

NARRATIVE: CASE EVENT DATE: 20150728
